FAERS Safety Report 13536331 (Version 8)
Quarter: 2018Q4

REPORT INFORMATION
  Report Type: Spontaneous
  Country: US (occurrence: US)
  Receive Date: 20170511
  Receipt Date: 20181102
  Transmission Date: 20190204
  Serious: Yes (Hospitalization)
  Sender: FDA-Public Use
  Company Number: US-PFIZER INC-2017205288

PATIENT
  Age: 33 Year
  Sex: Female
  Weight: 79.82 kg

DRUGS (5)
  1. LYRICA [Suspect]
     Active Substance: PREGABALIN
     Dosage: 300 MG, 2X/DAY
     Route: 048
     Dates: start: 2017, end: 2017
  2. CELEXA [CITALOPRAM HYDROBROMIDE] [Concomitant]
     Dosage: UNK
  3. ABILIFY [Concomitant]
     Active Substance: ARIPIPRAZOLE
     Dosage: UNK
  4. LYRICA [Suspect]
     Active Substance: PREGABALIN
     Indication: NEUROPATHY PERIPHERAL
     Dosage: 300 MG, TWICE DAILY
     Route: 048
     Dates: start: 2016
  5. LISINOPRIL. [Concomitant]
     Active Substance: LISINOPRIL
     Dosage: UNK

REACTIONS (4)
  - Dysphagia [Recovered/Resolved]
  - Foreign body in respiratory tract [Recovered/Resolved]
  - Hypersensitivity [Recovered/Resolved]
  - Drug ineffective for unapproved indication [Recovered/Resolved]

NARRATIVE: CASE EVENT DATE: 2016
